FAERS Safety Report 5525195-8 (Version None)
Quarter: 2007Q4

REPORT INFORMATION
  Report Type: 
  Country: None (occurrence: None)
  Receive Date: 20071120
  Receipt Date: 20070226
  Transmission Date: 20080405
  Serious: Yes (Other)
  Sender: FDA-Public Use
  Company Number: 07H-163-0312097-00

PATIENT
  Age: 40 Year
  Sex: Female

DRUGS (1)
  1. BUPIVACAINE HCL [Suspect]
     Indication: NERVE BLOCK
     Dosage: MAXILLARY INJECTION
     Dates: start: 20070201, end: 20070201

REACTIONS (1)
  - GRAND MAL CONVULSION [None]
